FAERS Safety Report 21401218 (Version 1)
Quarter: 2022Q4

REPORT INFORMATION
  Report Type: Spontaneous
  Country: NL (occurrence: NL)
  Receive Date: 20221003
  Receipt Date: 20221003
  Transmission Date: 20230113
  Serious: Yes (Life-Threatening, Hospitalization, Other)
  Sender: FDA-Public Use
  Company Number: NL-LRB-00829379

PATIENT
  Sex: Male
  Weight: 88 kg

DRUGS (1)
  1. POLYETHYLENE GLYCOL-3350 AND ELECTROLYTES [Suspect]
     Active Substance: POLYETHYLENE GLYCOL 3350\POTASSIUM CHLORIDE\SODIUM BICARBONATE\SODIUM CHLORIDE\SODIUM SULFATE
     Indication: Volvulus
     Dosage: 2 DOSAGE FORM, TWO TIMES A DAY,2 SACHETS PER GLASS OF WATER; 2X A DAY.
     Route: 065
     Dates: start: 20220823

REACTIONS (1)
  - Volvulus [Recovered/Resolved]
